FAERS Safety Report 7805361-9 (Version None)
Quarter: 2011Q4

REPORT INFORMATION
  Report Type: 
  Country: None (occurrence: None)
  Receive Date: 20111010
  Receipt Date: 20110927
  Transmission Date: 20120403
  Serious: Yes (Other)
  Sender: FDA-Public Use
  Company Number: US-MYLANLABS-2011S1020560

PATIENT
  Age: 67 Year
  Sex: Female

DRUGS (3)
  1. SILDENAFIL CITRATE [Concomitant]
     Indication: PULMONARY HYPERTENSION
     Route: 065
  2. MYCOPHENOLATE MOFETIL [Suspect]
     Indication: WEGENER'S GRANULOMATOSIS
     Dosage: DOSAGE INCREASED FROM 500 MG/DAY TO 2000 MG/DAY OVER THE LAST 6 MONTHS
     Route: 065
  3. MYCOPHENOLATE MOFETIL [Suspect]
     Dosage: DOSAGE INCREASED FROM 500 MG/DAY TO 2000 MG/DAY OVER THE LAST 6 MONTHS
     Route: 065

REACTIONS (1)
  - ALVEOLAR PROTEINOSIS [None]
